FAERS Safety Report 6630878-2 (Version None)
Quarter: 2010Q1

REPORT INFORMATION
  Report Type: 
  Country: None (occurrence: None)
  Receive Date: 20100311
  Receipt Date: 20090511
  Transmission Date: 20100710
  Serious: Yes (Other)
  Sender: FDA-Public Use
  Company Number: US-SANOFI-AVENTIS-200914239US

PATIENT

DRUGS (1)
  1. GLIBENCLAMIDE [Suspect]
     Indication: TYPE 2 DIABETES MELLITUS
     Dosage: DOSE AS USED: 2.5 MG DAILY TITRATED UP TO 7.5 MG TWICE DAILY MG
     Route: 048

REACTIONS (4)
  - FALL [None]
  - FRACTURE [None]
  - LIMB INJURY [None]
  - MULTIPLE FRACTURES [None]
